FAERS Safety Report 8239883-6 (Version None)
Quarter: 2012Q1

REPORT INFORMATION
  Report Type: 
  Country: None (occurrence: None)
  Receive Date: 20120328
  Receipt Date: 20120326
  Transmission Date: 20120608
  Serious: Yes (Death, Hospitalization, Other)
  Sender: FDA-Public Use
  Company Number: PHEH2011US008981

PATIENT
  Sex: Male

DRUGS (8)
  1. TOBI [Suspect]
     Indication: BRONCHIECTASIS
     Dosage: 300 MG, BID
     Dates: start: 20111105
  2. HYDRALAZINE HCL [Concomitant]
  3. PROAIR HFA [Concomitant]
  4. TOBI [Suspect]
     Indication: LUNG INFECTION PSEUDOMONAL
  5. ISOSORBIDE DINITRATE [Concomitant]
  6. ALBUTEROL [Concomitant]
  7. ASPIRIN [Concomitant]
  8. SPIRIVA [Concomitant]

REACTIONS (7)
  - PRODUCTIVE COUGH [None]
  - INFECTION [None]
  - DEATH [None]
  - RESPIRATORY TRACT INFECTION [None]
  - FEELING ABNORMAL [None]
  - PULMONARY FUNCTION TEST DECREASED [None]
  - COUGH [None]
